FAERS Safety Report 18510398 (Version 1)
Quarter: 2020Q4

REPORT INFORMATION
  Report Type: Spontaneous
  Country: US (occurrence: US)
  Receive Date: 20201115
  Receipt Date: 20201115
  Transmission Date: 20210114
  Serious: No
  Sender: FDA-Public Use
  Company Number: None

PATIENT
  Age: 13 Year
  Sex: Male
  Weight: 84.4 kg

DRUGS (1)
  1. COVID CONVALESECENT PLASMA [Suspect]
     Active Substance: COVID-19 CONVALESCENT PLASMA
     Indication: COVID-19 PNEUMONIA
     Dates: start: 20201113, end: 20201114

REACTIONS (2)
  - Pyrexia [None]
  - Transfusion reaction [None]

NARRATIVE: CASE EVENT DATE: 20201114
